FAERS Safety Report 8694118 (Version 50)
Quarter: 2018Q1

REPORT INFORMATION
  Report Type: Report from Study
  Country: LB (occurrence: LB)
  Receive Date: 20120731
  Receipt Date: 20180118
  Transmission Date: 20180509
  Serious: Yes (Other)
  Sender: FDA-Public Use
  Company Number: PHHY2012LB065405

PATIENT
  Age: 43 Year
  Sex: Female
  Weight: 80 kg

DRUGS (6)
  1. GASTRIMUT [Concomitant]
     Active Substance: OMEPRAZOLE
     Indication: PRODUCT USED FOR UNKNOWN INDICATION
     Dosage: PRN (SOS)
     Route: 048
     Dates: start: 2010
  2. CIPRALEX [Concomitant]
     Active Substance: ESCITALOPRAM OXALATE
     Indication: PRODUCT USED FOR UNKNOWN INDICATION
     Dosage: 1 DF, QD
     Route: 048
     Dates: start: 2010
  3. TASIGNA [Suspect]
     Active Substance: NILOTINIB
     Indication: CHRONIC MYELOID LEUKAEMIA
     Dosage: 300 MG, QD (STRENGTH 150 MG)
     Route: 048
     Dates: start: 20120622
  4. TASIGNA [Suspect]
     Active Substance: NILOTINIB
     Dosage: 600 MG, QD (STRENGTH 150 MG)
     Route: 048
     Dates: start: 201512
  5. TASIGNA [Suspect]
     Active Substance: NILOTINIB
     Dosage: 800 MG, UNK (STRENGTH 200 MG)
     Route: 048
     Dates: start: 201701
  6. ADVIL [Concomitant]
     Active Substance: IBUPROFEN
     Indication: PRODUCT USED FOR UNKNOWN INDICATION
     Dosage: PRN (SOS)
     Route: 048

REACTIONS (39)
  - Thrombocytopenia [Recovered/Resolved]
  - Pyrexia [Not Recovered/Not Resolved]
  - Headache [Recovering/Resolving]
  - Dysphonia [Unknown]
  - Arthralgia [Not Recovered/Not Resolved]
  - Myalgia [Recovering/Resolving]
  - Weight increased [Not Recovered/Not Resolved]
  - Anaemia [Recovering/Resolving]
  - Salivary gland pain [Not Recovered/Not Resolved]
  - Fatigue [Recovering/Resolving]
  - Bone pain [Recovering/Resolving]
  - Musculoskeletal pain [Not Recovered/Not Resolved]
  - Cytogenetic analysis abnormal [Recovering/Resolving]
  - Thermal burn [Recovering/Resolving]
  - Hypersensitivity [Recovered/Resolved]
  - Constipation [Not Recovered/Not Resolved]
  - Cough [Recovering/Resolving]
  - Anaemia [Recovered/Resolved]
  - Abdominal distension [Recovering/Resolving]
  - Influenza [Recovering/Resolving]
  - Back pain [Not Recovered/Not Resolved]
  - Hyperglycaemia [Not Recovered/Not Resolved]
  - Anxiety [Not Recovered/Not Resolved]
  - Weight decreased [Not Recovered/Not Resolved]
  - Polymerase chain reaction positive [Not Recovered/Not Resolved]
  - Pain in extremity [Recovering/Resolving]
  - Wound [Not Recovered/Not Resolved]
  - Pelvic pain [Recovering/Resolving]
  - Depression [Recovered/Resolved]
  - Cytogenetic analysis abnormal [Recovered/Resolved]
  - Haematocrit decreased [Not Recovered/Not Resolved]
  - Haematochezia [Not Recovered/Not Resolved]
  - Diarrhoea [Recovered/Resolved]
  - Haematemesis [Not Recovered/Not Resolved]
  - Wound complication [Unknown]
  - Haemorrhoids [Recovering/Resolving]
  - Limb injury [Unknown]
  - Neck pain [Not Recovered/Not Resolved]
  - Vomiting [Unknown]

NARRATIVE: CASE EVENT DATE: 20120730
